FAERS Safety Report 8248025-2 (Version None)
Quarter: 2012Q1

REPORT INFORMATION
  Report Type: 
  Country: None (occurrence: None)
  Receive Date: 20120330
  Receipt Date: 20120319
  Transmission Date: 20120608
  Serious: Yes (Hospitalization, Other)
  Sender: FDA-Public Use
  Company Number: FR-ELI_LILLY_AND_COMPANY-FR201203005118

PATIENT
  Age: 62 Year
  Sex: Male

DRUGS (3)
  1. GEMZAR [Suspect]
     Indication: LEIOMYOSARCOMA
     Dosage: UNK, UNKNOWN
     Route: 042
  2. TAXOTERE [Concomitant]
     Route: 042
  3. VALSARTAN  AND HYDROCHLOROTHIAZIDE [Concomitant]
     Dosage: UNK, UNKNOWN

REACTIONS (4)
  - RENAL FAILURE ACUTE [None]
  - DIARRHOEA [None]
  - DEHYDRATION [None]
  - OFF LABEL USE [None]
